FAERS Safety Report 23346936 (Version 1)
Quarter: 2023Q4

REPORT INFORMATION
  Report Type: Spontaneous
  Country: US (occurrence: US)
  Receive Date: 20231228
  Receipt Date: 20231228
  Transmission Date: 20240109
  Serious: No
  Sender: FDA-Public Use
  Company Number: US-SANOFI-01885547

PATIENT
  Age: 95 Year
  Sex: Female

DRUGS (1)
  1. LOVENOX [Suspect]
     Active Substance: ENOXAPARIN SODIUM
     Dosage: 60 MG

REACTIONS (1)
  - Expired product administered [Unknown]
